FAERS Safety Report 13732948 (Version 1)
Quarter: 2017Q3

REPORT INFORMATION
  Report Type: Spontaneous
  Country: US (occurrence: US)
  Receive Date: 20170707
  Receipt Date: 20170707
  Transmission Date: 20171127
  Serious: No
  Sender: FDA-Public Use
  Company Number: US-ROCHE-801341

PATIENT
  Age: 59 Year
  Sex: Male

DRUGS (5)
  1. NEORAL [Concomitant]
     Active Substance: CYCLOSPORINE
     Route: 065
  2. CYTOVENE IV [Suspect]
     Active Substance: GANCICLOVIR SODIUM
     Indication: CYTOMEGALOVIRUS INFECTION
     Dosage: FOR ONE WEEK
     Route: 065
  3. GENGRAF [Concomitant]
     Active Substance: CYCLOSPORINE
     Route: 065
  4. CYTOVENE IV [Suspect]
     Active Substance: GANCICLOVIR SODIUM
     Dosage: FOR 1 WEEK
     Route: 065
  5. SANDIMMUNE [Concomitant]
     Active Substance: CYCLOSPORINE
     Route: 065

REACTIONS (2)
  - Oral fungal infection [Unknown]
  - Fungal infection [Unknown]

NARRATIVE: CASE EVENT DATE: 199406
